FAERS Safety Report 11560718 (Version 1)
Quarter: 2015Q3

REPORT INFORMATION
  Report Type: Spontaneous
  Country: ES (occurrence: ES)
  Receive Date: 20150928
  Receipt Date: 20150928
  Transmission Date: 20151125
  Serious: Yes (Other)
  Sender: FDA-Public Use
  Company Number: ES-ASTELLAS-2015US034019

PATIENT
  Sex: Male

DRUGS (3)
  1. DIANBEN [Concomitant]
     Active Substance: METFORMIN HYDROCHLORIDE
     Indication: BLOOD GLUCOSE INCREASED
     Dosage: UNK UNK, UNKNOWN FREQ.
     Route: 065
  2. ALLENTION [Concomitant]
     Indication: PRODUCT USED FOR UNKNOWN INDICATION
     Dosage: UNK, UNKNOWN FREQ.
     Route: 065
  3. PROTOPIC [Suspect]
     Active Substance: TACROLIMUS
     Indication: DERMATITIS ATOPIC
     Route: 061
     Dates: start: 20150903

REACTIONS (2)
  - Blood glucose increased [Not Recovered/Not Resolved]
  - Abdominal discomfort [Not Recovered/Not Resolved]

NARRATIVE: CASE EVENT DATE: 201509
